FAERS Safety Report 16917653 (Version 1)
Quarter: 2019Q4

REPORT INFORMATION
  Report Type: Spontaneous
  Country: US (occurrence: US)
  Receive Date: 20191015
  Receipt Date: 20191015
  Transmission Date: 20200122
  Serious: No
  Sender: FDA-Public Use
  Company Number: US-SHIRE-US201933655

PATIENT
  Sex: Female

DRUGS (1)
  1. GATTEX [Suspect]
     Active Substance: TEDUGLUTIDE\WATER
     Indication: PRODUCT USED FOR UNKNOWN INDICATION
     Dosage: 0.280 UNK
     Route: 058
     Dates: start: 20180419

REACTIONS (3)
  - Weight decreased [Not Recovered/Not Resolved]
  - Fatigue [Not Recovered/Not Resolved]
  - Gastrointestinal stoma output abnormal [Not Recovered/Not Resolved]
